FAERS Safety Report 14676652 (Version 1)
Quarter: 2018Q1

REPORT INFORMATION
  Report Type: Spontaneous
  Country: ES (occurrence: ES)
  Receive Date: 20180324
  Receipt Date: 20180324
  Transmission Date: 20180509
  Serious: Yes (Hospitalization)
  Sender: FDA-Public Use
  Company Number: ES-AMGEN-ESPSP2018036592

PATIENT
  Age: 55 Year
  Sex: Female

DRUGS (2)
  1. BISOPROLOL [Interacting]
     Active Substance: BISOPROLOL
     Indication: MYOCARDIAL ISCHAEMIA
     Dosage: UNK
     Route: 048
  2. IVABRADINE [Suspect]
     Active Substance: IVABRADINE
     Indication: MYOCARDIAL ISCHAEMIA
     Dosage: UNK
     Route: 048

REACTIONS (5)
  - Sinus bradycardia [Recovered/Resolved]
  - Chest pain [Recovered/Resolved]
  - Off label use [Unknown]
  - Asthenia [Recovered/Resolved]
  - Dizziness [Recovered/Resolved]

NARRATIVE: CASE EVENT DATE: 20131021
